FAERS Safety Report 24106326 (Version 1)
Quarter: 2024Q3

REPORT INFORMATION
  Report Type: Spontaneous
  Country: US (occurrence: US)
  Receive Date: 20240717
  Receipt Date: 20240717
  Transmission Date: 20241017
  Serious: No
  Sender: Phathom Pharmaceuticals
  Company Number: US-PHATHOM PHARMACEUTICALS INC.-2024PHT00274

PATIENT
  Age: 75 Year
  Sex: Female

DRUGS (1)
  1. VOQUEZNA [Suspect]
     Active Substance: VONOPRAZAN FUMARATE
     Indication: Erosive oesophagitis
     Dosage: 20 MG, 1X/DAY
     Route: 048
     Dates: start: 20240423, end: 20240430

REACTIONS (3)
  - Foreign body in throat [Recovered/Resolved]
  - Abnormal faeces [Recovered/Resolved]
  - Wrong technique in product usage process [Recovered/Resolved]

NARRATIVE: CASE EVENT DATE: 20240401
